FAERS Safety Report 14557721 (Version 2)
Quarter: 2020Q2

REPORT INFORMATION
  Report Type: Report from Study
  Country: AU (occurrence: AU)
  Receive Date: 20180221
  Receipt Date: 20200518
  Transmission Date: 20200713
  Serious: Yes (Other)
  Sender: FDA-Public Use
  Company Number: AU-JNJFOC-20180116946

PATIENT
  Sex: Female

DRUGS (1)
  1. SIMPONI [Suspect]
     Active Substance: GOLIMUMAB
     Indication: RHEUMATOID ARTHRITIS
     Route: 058

REACTIONS (6)
  - Therapeutic product effect decreased [Unknown]
  - Hypertension [Unknown]
  - Cerebral haemorrhage [Unknown]
  - Stress [Unknown]
  - Arthralgia [Unknown]
  - Transient ischaemic attack [Unknown]
